FAERS Safety Report 20873372 (Version 1)
Quarter: 2022Q2

REPORT INFORMATION
  Report Type: Spontaneous
  Country: PL (occurrence: PL)
  Receive Date: 20220525
  Receipt Date: 20220525
  Transmission Date: 20220720
  Serious: Yes (Other)
  Sender: FDA-Public Use
  Company Number: PL-MALLINCKRODT-T202201013

PATIENT
  Age: 8 Year
  Sex: Male

DRUGS (5)
  1. UVADEX [Suspect]
     Active Substance: METHOXSALEN
     Indication: Graft versus host disease in gastrointestinal tract
     Dosage: UNK (EXTRACORPOREAL )
     Route: 050
  2. ETANERCEPT [Suspect]
     Active Substance: ETANERCEPT
     Indication: Graft versus host disease in gastrointestinal tract
     Dosage: UNK
     Route: 065
  3. BASILIXIMAB [Suspect]
     Active Substance: BASILIXIMAB
     Indication: Graft versus host disease in gastrointestinal tract
     Dosage: UNK
     Route: 065
  4. RUXOLITINIB [Suspect]
     Active Substance: RUXOLITINIB
     Indication: Graft versus host disease in gastrointestinal tract
     Dosage: UNK
     Route: 065
  5. MYCOPHENOLATE MOFETIL [Suspect]
     Active Substance: MYCOPHENOLATE MOFETIL
     Indication: Graft versus host disease in gastrointestinal tract
     Dosage: UNK
     Route: 065

REACTIONS (5)
  - Gastrointestinal haemorrhage [Recovered/Resolved]
  - Acute graft versus host disease [Recovered/Resolved]
  - Condition aggravated [Recovered/Resolved]
  - Gastritis erosive [Unknown]
  - Drug ineffective for unapproved indication [Recovered/Resolved]
